FAERS Safety Report 9483102 (Version 1)
Quarter: 2013Q3

REPORT INFORMATION
  Report Type: Spontaneous
  Country: US (occurrence: US)
  Receive Date: 20130828
  Receipt Date: 20130828
  Transmission Date: 20140515
  Serious: Yes (Hospitalization)
  Sender: FDA-Public Use
  Company Number: US-AMGEN-US107713

PATIENT
  Age: 56 Year
  Sex: Male

DRUGS (13)
  1. ENBREL [Suspect]
     Indication: RHEUMATOID ARTHRITIS
     Dosage: 25 MG, 2 TIMES/WK
     Route: 058
     Dates: start: 20000223, end: 200411
  2. CELECOXIB [Concomitant]
     Dosage: 200 MG, BID
     Route: 065
  3. PREDNISONE [Concomitant]
     Dosage: UNK UNK, UNK
     Route: 065
     Dates: start: 1974
  4. ATORVASTATIN CALCIUM [Concomitant]
     Dosage: 20 MG, QD
     Route: 065
     Dates: start: 1998
  5. LISINOPRIL [Concomitant]
     Dosage: UNK UNK, QD
     Route: 065
     Dates: start: 2002
  6. PIOGLITAZONE HCL [Concomitant]
     Dosage: 45 MG, QD
     Route: 065
     Dates: start: 2000
  7. GLIMEPIRIDE [Concomitant]
     Dosage: 8 MG, QD
     Route: 065
     Dates: start: 2002
  8. INSULIN [Concomitant]
     Dosage: UNK UNK, UNK
     Route: 065
     Dates: start: 2005
  9. CEFPODOXIME PROXETIL [Concomitant]
     Dosage: 400 MG, BID
     Route: 065
     Dates: start: 200412
  10. LINEZOLID [Concomitant]
     Dosage: 600 MG, BID
     Route: 065
     Dates: start: 200412
  11. METOPROLOL [Concomitant]
     Dosage: 50 MG, BID
     Route: 065
     Dates: start: 1998
  12. IPRATROPIUM BROMIDE/ALBUTEROL SULFATE [Concomitant]
     Dosage: UNK UNK, UNK
     Dates: start: 2004
  13. FLUTICASONE/SALMETEROL [Concomitant]
     Dosage: UNK UNK, BID
     Route: 065
     Dates: start: 2004

REACTIONS (3)
  - Pneumothorax [Unknown]
  - Diaphragmatic paralysis [Unknown]
  - Pneumonia [Not Recovered/Not Resolved]
